FAERS Safety Report 5740166-4 (Version None)
Quarter: 2008Q2

REPORT INFORMATION
  Report Type: 
  Country: None (occurrence: None)
  Receive Date: 20080516
  Receipt Date: 20080509
  Transmission Date: 20081010
  Serious: Yes (Other)
  Sender: FDA-Public Use
  Company Number: US-ROCHE-563592

PATIENT
  Age: 73 Year
  Sex: Female

DRUGS (18)
  1. BONIVA [Suspect]
     Indication: OSTEOPOROSIS
     Route: 048
     Dates: start: 20071201
  2. DIOVAN HCT [Concomitant]
     Dosage: DOSE: 160/ 12.5 MG EVERY MORNING (Q A.M)
  3. DIOVAN HCT [Concomitant]
     Dosage: DOSE: 160/ 12.5 MG EVERY MORNING (Q A.M)
  4. LEVOTHYROXINE SODIUM [Concomitant]
     Dosage: TAKEN: EVERY MORNING (QAM)
  5. FLOVENT [Concomitant]
     Dosage: DRUG REPORTED: FLOVENT 220. DOSE TAKEN EVERY MORNING.
  6. METOPROLOL SUCCINATE [Concomitant]
     Dosage: TAKEN: EVERY MORNING (QAM)
  7. THEO-24 [Concomitant]
  8. KLOR-CON [Concomitant]
     Dosage: DOSE TAKEN EVERY MID-MORNING (QAM)
  9. METAMUCIL [Concomitant]
  10. ASPIRIN [Concomitant]
     Dosage: DRUG: BABY ASPIRIN.
  11. GLUCOSAMINE [Concomitant]
  12. CHONDROITIN [Concomitant]
  13. 1 CONCOMITANT DRUG [Concomitant]
     Dosage: DRUG REPORTED: CALCUMATE COMPLETE.
  14. VITAMINE D [Concomitant]
  15. PRILOSEC [Concomitant]
     Dosage: DOSE TAKEN: EVERY NIGHT (QHS)
  16. CRESTOR [Concomitant]
     Dosage: DOSE TAKEN: EVERY NIGHT (QHS)
  17. FOLIC ACID [Concomitant]
  18. VITAMIN B-12 [Concomitant]

REACTIONS (2)
  - EPISTAXIS [None]
  - INTRACRANIAL ANEURYSM [None]
